FAERS Safety Report 11091078 (Version 4)
Quarter: 2016Q1

REPORT INFORMATION
  Report Type: Spontaneous
  Country: US (occurrence: US)
  Receive Date: 20150505
  Receipt Date: 20160301
  Transmission Date: 20160525
  Serious: No
  Sender: FDA-Public Use
  Company Number: US-PFIZER INC-2014091186

PATIENT
  Age: 51 Year
  Sex: Female

DRUGS (31)
  1. METOPROLOL TARTRATE. [Concomitant]
     Active Substance: METOPROLOL TARTRATE
     Dosage: 100 MG, 2X/DAY
     Route: 048
     Dates: start: 20141007
  2. LISINOPRIL. [Concomitant]
     Active Substance: LISINOPRIL
     Indication: ESSENTIAL HYPERTENSION
     Dosage: 10 MG, DAILY
     Route: 048
     Dates: start: 20141013
  3. VITAMIN E [Concomitant]
     Active Substance: .ALPHA.-TOCOPHEROL
     Dosage: 400 IU, 2X/DAY
     Route: 048
  4. HYDROCHLOROTHIAZIDE. [Concomitant]
     Active Substance: HYDROCHLOROTHIAZIDE
     Dosage: 25 MG, 2X/DAY
     Route: 048
  5. IMITREX [Concomitant]
     Active Substance: SUMATRIPTAN SUCCINATE
     Dosage: UNK, AS NEEDED
     Route: 058
  6. LYRICA [Suspect]
     Active Substance: PREGABALIN
     Indication: DIABETIC NEUROPATHY
     Dosage: 150 MG, 2X/DAY
     Route: 048
     Dates: start: 20150227
  7. ZANAFLEX [Concomitant]
     Active Substance: TIZANIDINE HYDROCHLORIDE
     Dosage: 4 MG, AS NEEDED (4 TIMES A DAY)
     Dates: start: 20150223
  8. HUMULIN R [Concomitant]
     Active Substance: INSULIN HUMAN
     Dosage: 100UNIT/ML SOLUTION, PER INJECTION SLIDING SCALE
  9. MORPHINE SULPHATE [Concomitant]
     Active Substance: MORPHINE SULFATE
     Indication: PAIN MANAGEMENT
     Dosage: 15 MG, 2X/DAY (EVERY 12 HRS)
     Route: 048
  10. LYRICA [Suspect]
     Active Substance: PREGABALIN
     Dosage: 150 MG, 2X/DAY
     Route: 048
     Dates: start: 20151109
  11. INSULIN [Concomitant]
     Active Substance: INSULIN NOS
     Indication: DIABETIC NEUROPATHY
     Dosage: 31 G, 3X/DAY (31G, 1 (ONE) MISC USE THREE TIMES A DAY)
     Dates: start: 20140211
  12. ASPIRIN. [Concomitant]
     Active Substance: ASPIRIN
     Dosage: 81 MG, 1X/DAY
     Route: 048
  13. PROTONIX [Concomitant]
     Active Substance: PANTOPRAZOLE SODIUM
     Dosage: 40 MG, DAILY
     Route: 048
  14. PROTONIX [Concomitant]
     Active Substance: PANTOPRAZOLE SODIUM
     Dosage: 20 MG, 1X/DAY
     Route: 048
     Dates: start: 20151118
  15. TRAMADOL HCL [Concomitant]
     Active Substance: TRAMADOL HYDROCHLORIDE
     Indication: INTERVERTEBRAL DISC DEGENERATION
  16. ZANAFLEX [Concomitant]
     Active Substance: TIZANIDINE HYDROCHLORIDE
     Dosage: 4 MG, AS NEEDED (EVERY 6 HOURS)
     Dates: start: 20150922
  17. PLAVIX [Concomitant]
     Active Substance: CLOPIDOGREL BISULFATE
     Indication: MYOCARDIAL INFARCTION
     Dosage: 75 MG, DAILY
     Route: 048
     Dates: start: 20150529
  18. LASIX [Concomitant]
     Active Substance: FUROSEMIDE
     Dosage: 40 MG, DAILY
     Dates: start: 20141110
  19. TRAMADOL HCL [Concomitant]
     Active Substance: TRAMADOL HYDROCHLORIDE
     Indication: BACK PAIN
     Dosage: 100 MG, 4X/DAY (50MG, 2 TABLET EVERY 6 HOURS)
     Dates: start: 20150217
  20. TRAMADOL HCL [Concomitant]
     Active Substance: TRAMADOL HYDROCHLORIDE
     Indication: NEURALGIA
  21. LIDODERM [Concomitant]
     Active Substance: LIDOCAINE
     Indication: INTERVERTEBRAL DISC DEGENERATION
     Dosage: 1 DF, 1X/DAY (5%, 1 (ONE) PATCH EVERY-DAY USE 12 HOURS IN A 24 HOUR PERIOD)
     Dates: start: 20140702
  22. LASIX [Concomitant]
     Active Substance: FUROSEMIDE
     Dosage: 40 MG DAILY (ONE TABLET DAILY)
     Dates: start: 20151118
  23. AMITRIPTYLINE HYDROCHLORIDE. [Concomitant]
     Active Substance: AMITRIPTYLINE HYDROCHLORIDE
     Dosage: 50 MG, 1X/DAY (AT BEDTIME)
     Route: 048
     Dates: start: 20151118
  24. SIMVASTATIN. [Concomitant]
     Active Substance: SIMVASTATIN
     Indication: HYPERLIPIDAEMIA
     Dosage: 80MG 1 TABLET AT BEDTIME
     Dates: start: 20140211
  25. METOPROLOL TARTRATE. [Concomitant]
     Active Substance: METOPROLOL TARTRATE
     Dosage: 100 MG, 2X/DAY (100MG, 1 TABLET TWO TIMES DAILY )
     Route: 048
     Dates: start: 20151118
  26. LISINOPRIL. [Concomitant]
     Active Substance: LISINOPRIL
     Dosage: 10 MG, DAILY
     Route: 048
     Dates: start: 20151118
  27. NOVOLIN N [Concomitant]
     Active Substance: INSULIN HUMAN
     Indication: DIABETIC NEUROPATHY
     Dosage: 100UNIT/ML,25 UNITS IF BLOOD SUGAR IS 150},OR 150-200 USE 35UNITS OR200+BLOOD SUGAR 40UNIT,2X/DAY
     Dates: start: 20140528
  28. AMITRIPTYLINE HYDROCHLORIDE. [Concomitant]
     Active Substance: AMITRIPTYLINE HYDROCHLORIDE
     Dosage: 50 MG, 1X/DAY (AT BEDTIME)
     Route: 048
     Dates: start: 20141013
  29. LANTUS [Concomitant]
     Active Substance: INSULIN GLARGINE
     Dosage: 60 IU, 1X/DAY (100UNIT/ML SOLUTION, 60 UNITS SUBCUTANEOUS AT BEDTIME)
     Route: 058
  30. PLETAL [Concomitant]
     Active Substance: CILOSTAZOL
     Dosage: 100 MG, 2X/DAY
     Route: 048
  31. COMBIVENT [Concomitant]
     Active Substance: ALBUTEROL SULFATE\IPRATROPIUM BROMIDE
     Dosage: 18-103 MCG/ACT, 2 PUFFS INHALATION 2X/DAY
     Route: 045

REACTIONS (4)
  - Dermatitis [Unknown]
  - Hypertriglyceridaemia [Unknown]
  - Anxiety [Unknown]
  - Depression [Unknown]
